FAERS Safety Report 21424830 (Version 2)
Quarter: 2022Q4

REPORT INFORMATION
  Report Type: Spontaneous
  Country: US (occurrence: US)
  Receive Date: 20221008
  Receipt Date: 20221013
  Transmission Date: 20230113
  Serious: Yes (Hospitalization, Other)
  Sender: FDA-Public Use
  Company Number: US-BRISTOL-MYERS SQUIBB COMPANY-2022-115211

PATIENT
  Sex: Male

DRUGS (14)
  1. HYDREA [Suspect]
     Active Substance: HYDROXYUREA
     Indication: Sickle cell disease
     Route: 048
     Dates: start: 20110220, end: 20211105
  2. HYDREA [Suspect]
     Active Substance: HYDROXYUREA
     Route: 065
     Dates: start: 20220316, end: 20220414
  3. HYDREA [Suspect]
     Active Substance: HYDROXYUREA
     Route: 065
  4. OXBRYTA [Suspect]
     Active Substance: VOXELOTOR
     Indication: Sickle cell disease
     Route: 065
     Dates: start: 20220401
  5. ZYLOPRIM [Concomitant]
     Active Substance: ALLOPURINOL
     Indication: Gout
     Route: 048
     Dates: start: 20120815
  6. ZYLOPRIM [Concomitant]
     Active Substance: ALLOPURINOL
     Indication: Sickle cell disease
     Route: 048
     Dates: start: 20120605
  7. VITAMINS [Concomitant]
     Active Substance: VITAMINS
     Indication: Hypovitaminosis
     Route: 048
     Dates: start: 20220407, end: 20220524
  8. MODERNA COVID-19 VACCINE [Concomitant]
     Active Substance: ELASOMERAN
     Indication: Product used for unknown indication
     Route: 030
     Dates: start: 20210213
  9. MODERNA COVID-19 VACCINE [Concomitant]
     Active Substance: ELASOMERAN
     Route: 030
     Dates: start: 20210313, end: 20210313
  10. MODERNA COVID-19 VACCINE [Concomitant]
     Active Substance: ELASOMERAN
     Dosage: ONCE
     Route: 030
     Dates: start: 20211010, end: 20211010
  11. MODERNA COVID-19 VACCINE [Concomitant]
     Active Substance: ELASOMERAN
     Route: 030
     Dates: start: 20220429, end: 20220429
  12. ALENDRONATE [Concomitant]
     Active Substance: ALENDRONATE SODIUM
     Indication: Osteoporosis
     Route: 048
     Dates: start: 20220126, end: 20220424
  13. EXJADE [Concomitant]
     Active Substance: DEFERASIROX
     Indication: Haemochromatosis
     Route: 048
     Dates: start: 20200929, end: 20220414
  14. ERGOCALCIFEROL [Concomitant]
     Active Substance: ERGOCALCIFEROL
     Indication: Product used for unknown indication
     Route: 065

REACTIONS (5)
  - Rhinorrhoea [Unknown]
  - Pancytopenia [Recovered/Resolved]
  - Reticulocytopenia [Unknown]
  - Off label use [Unknown]
  - Incorrect dose administered [Unknown]

NARRATIVE: CASE EVENT DATE: 20220101
